FAERS Safety Report 9012745 (Version 2)
Quarter: 2013Q3

REPORT INFORMATION
  Report Type: Report from Study
  Country: FR (occurrence: FR)
  Receive Date: 20130114
  Receipt Date: 20130701
  Transmission Date: 20140515
  Serious: Yes (Death)
  Sender: FDA-Public Use
  Company Number: FR-ACTELION-A-CH2013-77661

PATIENT
  Age: 55 Year
  Sex: Female
  Weight: 51 kg

DRUGS (19)
  1. TRACLEER [Suspect]
     Indication: SKIN ULCER
     Dosage: 125 MG, BID
     Route: 048
     Dates: start: 20080701, end: 201212
  2. TRACLEER [Suspect]
     Dosage: 62.5 MG, BID
     Route: 048
     Dates: start: 20080601, end: 20080701
  3. ARANESP [Concomitant]
  4. TARDYFERON [Concomitant]
  5. DEROXAT [Concomitant]
  6. INEXIUM [Concomitant]
  7. KARDEGIC [Concomitant]
  8. LASILIX [Concomitant]
  9. RIVOTRIL [Concomitant]
  10. COVERAM [Concomitant]
  11. BACTRIM [Concomitant]
  12. LARMABAK [Concomitant]
  13. VENTOLINE [Concomitant]
  14. UVEDOSE [Concomitant]
  15. GAVISCON [Concomitant]
  16. TRAMADOL [Concomitant]
  17. XANAX [Concomitant]
  18. OXYNORM [Concomitant]
  19. O2 [Concomitant]

REACTIONS (1)
  - Pneumonia [Fatal]
